FAERS Safety Report 6632161-8 (Version None)
Quarter: 2010Q1

REPORT INFORMATION
  Report Type: 
  Country: None (occurrence: None)
  Receive Date: 20100310
  Receipt Date: 20100225
  Transmission Date: 20100710
  Serious: Yes (Hospitalization)
  Sender: FDA-Public Use
  Company Number: 238611K09USA

PATIENT
  Age: 29 Year
  Sex: Female

DRUGS (3)
  1. REBIF [Suspect]
     Indication: MULTIPLE SCLEROSIS
     Dosage: 44 MCG, 3 IN WEEKS, SUBCUTANEOUS
     Route: 058
     Dates: start: 20080118
  2. VITAMIN D [Concomitant]
  3. VITAMIN B12 [Concomitant]

REACTIONS (4)
  - ARTHRALGIA [None]
  - CONTRAST MEDIA REACTION [None]
  - GAIT DISTURBANCE [None]
  - RASH [None]
